FAERS Safety Report 4440623-7 (Version None)
Quarter: 2004Q3

REPORT INFORMATION
  Report Type: 
  Country: None (occurrence: None)
  Receive Date: 20040901
  Receipt Date: 20040901
  Transmission Date: 20050211
  Serious: Yes (Hospitalization)
  Sender: FDA-Public Use
  Company Number: None

PATIENT
  Sex: Male
  Weight: 81.6475 kg

DRUGS (12)
  1. ZITHROMAX [Suspect]
     Indication: ANTIBACTERIAL PROPHYLAXIS
     Dosage: PO
     Route: 048
     Dates: start: 20040508
  2. MOTRIN [Concomitant]
  3. VICODIN [Concomitant]
  4. LIBRIUM [Concomitant]
  5. EPIVIR [Concomitant]
  6. ZERIT [Concomitant]
  7. SUSTIVA [Concomitant]
  8. NEURONTIN [Concomitant]
  9. DIFLUCICAN [Concomitant]
  10. M.V.I. [Concomitant]
  11. THIAMIN [Concomitant]
  12. FOLATE [Concomitant]

REACTIONS (3)
  - DYSTONIA [None]
  - LOSS OF CONSCIOUSNESS [None]
  - SWOLLEN TONGUE [None]
